FAERS Safety Report 18416688 (Version 2)
Quarter: 2020Q4

REPORT INFORMATION
  Report Type: Report from Study
  Country: CN (occurrence: CN)
  Receive Date: 20201022
  Receipt Date: 20201105
  Transmission Date: 20210114
  Serious: Yes (Hospitalization, Other)
  Sender: FDA-Public Use
  Company Number: CN-ELI_LILLY_AND_COMPANY-CN202010008517

PATIENT
  Age: 23 Year
  Sex: Female

DRUGS (2)
  1. ZYPREXA [Suspect]
     Active Substance: OLANZAPINE
     Dosage: 5 MG, DAILY
     Route: 065
  2. ZYPREXA [Suspect]
     Active Substance: OLANZAPINE
     Indication: SCHIZOPHRENIA
     Dosage: 10 MG, DAILY
     Route: 065

REACTIONS (8)
  - Blood prolactin increased [Recovered/Resolved]
  - Breast tenderness [Recovered/Resolved]
  - Disturbance in attention [Unknown]
  - Mastitis [Recovered/Resolved]
  - Galactorrhoea [Unknown]
  - Oxytocin increased [Unknown]
  - Breast abscess [Recovered/Resolved]
  - Waxy flexibility [Unknown]
